FAERS Safety Report 5281150-7 (Version None)
Quarter: 2007Q1

REPORT INFORMATION
  Report Type: 
  Country: None (occurrence: None)
  Receive Date: 20070329
  Receipt Date: 20070319
  Transmission Date: 20070707
  Serious: Yes (Hospitalization)
  Sender: FDA-Public Use
  Company Number: JP-MERCK-0703USA04700

PATIENT
  Age: 80 Year
  Sex: Male

DRUGS (8)
  1. ZOCOR [Suspect]
     Indication: HYPERLIPIDAEMIA
     Route: 048
     Dates: start: 20031001, end: 20070305
  2. BLOPRESS [Suspect]
     Indication: HYPERTENSION
     Route: 048
     Dates: start: 20031001, end: 20070305
  3. ADALAT [Concomitant]
     Indication: HYPERTENSION
     Route: 048
     Dates: start: 20031001
  4. PARIET [Suspect]
     Indication: REFLUX OESOPHAGITIS
     Route: 048
     Dates: start: 20040925, end: 20070305
  5. [THERAPY UNSPECIFIED] [Concomitant]
     Route: 065
  6. MEILAX [Concomitant]
     Route: 048
     Dates: start: 20031001, end: 20070305
  7. TAMSULOSIN HYDROCHLORIDE [Concomitant]
     Route: 048
     Dates: start: 20060623, end: 20070305
  8. PROPIVERINE HYDROCHLORIDE [Concomitant]
     Route: 048
     Dates: start: 20061219, end: 20070305

REACTIONS (4)
  - GAIT DISTURBANCE [None]
  - PYREXIA [None]
  - REFLUX OESOPHAGITIS [None]
  - RHABDOMYOLYSIS [None]
